FAERS Safety Report 12124590 (Version 1)
Quarter: 2016Q1

REPORT INFORMATION
  Report Type: Spontaneous
  Country: US (occurrence: US)
  Receive Date: 20160229
  Receipt Date: 20160229
  Transmission Date: 20160526
  Serious: No
  Sender: FDA-Public Use
  Company Number: ALCN2016US001558

PATIENT
  Age: 66 Year
  Sex: Female

DRUGS (1)
  1. TRAVATAN Z [Suspect]
     Active Substance: TRAVOPROST
     Indication: GLAUCOMA
     Dosage: 1 GTT, QHS
     Route: 047
     Dates: start: 20160216, end: 20160222

REACTIONS (3)
  - Ocular discomfort [Not Recovered/Not Resolved]
  - Eye pain [Not Recovered/Not Resolved]
  - Vision blurred [Not Recovered/Not Resolved]

NARRATIVE: CASE EVENT DATE: 201602
